FAERS Safety Report 7266882-3 (Version None)
Quarter: 2011Q1

REPORT INFORMATION
  Report Type: 
  Country: None (occurrence: None)
  Receive Date: 20110201
  Receipt Date: 20110124
  Transmission Date: 20110831
  Serious: Yes (Hospitalization)
  Sender: FDA-Public Use
  Company Number: FR-JNJFOC-20110107262

PATIENT
  Age: 50 Year
  Sex: Male

DRUGS (1)
  1. HALDOL [Suspect]
     Indication: CONFUSIONAL STATE
     Dosage: 25 GTT IN THE MORNING, 50 GTT IN THE NIGHT
     Route: 048

REACTIONS (4)
  - DRUG INEFFECTIVE [None]
  - SOMNOLENCE [None]
  - DEPRESSION [None]
  - INTESTINAL OBSTRUCTION [None]
